FAERS Safety Report 15649400 (Version 4)
Quarter: 2022Q2

REPORT INFORMATION
  Report Type: Report from Study
  Country: US (occurrence: US)
  Receive Date: 20181122
  Receipt Date: 20220411
  Transmission Date: 20220721
  Serious: Yes (Hospitalization, Other)
  Sender: FDA-Public Use
  Company Number: US-ACADIA PHARMACEUTICALS INC.-ACA-2018-010517

PATIENT
  Age: 69 Year
  Sex: Female
  Weight: 46 kg

DRUGS (21)
  1. NUPLAZID [Suspect]
     Active Substance: PIMAVANSERIN TARTRATE
     Indication: Hallucination
     Dosage: 34 MG, QD AT BEDTIME
     Route: 048
     Dates: start: 20181010
  2. NUPLAZID [Suspect]
     Active Substance: PIMAVANSERIN TARTRATE
     Indication: Delusion
  3. NUPLAZID [Suspect]
     Active Substance: PIMAVANSERIN TARTRATE
     Indication: Parkinson^s disease psychosis
  4. CARBIDOPA AND LEVODOPA [Concomitant]
     Active Substance: CARBIDOPA\LEVODOPA
     Indication: Product used for unknown indication
  5. AZILECT [Concomitant]
     Active Substance: RASAGILINE MESYLATE
     Dosage: 1 MILLIGRAM, QD
  6. SEROQUEL [Concomitant]
     Active Substance: QUETIAPINE FUMARATE
     Indication: Product used for unknown indication
     Dosage: 50 MG, AT NIGHT
  7. SEROQUEL [Concomitant]
     Active Substance: QUETIAPINE FUMARATE
     Dosage: 100 MILLIGRAM AT NIGHT
  8. SEROQUEL [Concomitant]
     Active Substance: QUETIAPINE FUMARATE
     Dosage: 200 MILLIGRAM AT NIGHT
  9. RASAGILINE MESYLATE [Concomitant]
     Active Substance: RASAGILINE MESYLATE
     Indication: Product used for unknown indication
  10. ACETAMINOPHEN [Concomitant]
     Active Substance: ACETAMINOPHEN
     Indication: Product used for unknown indication
  11. ADVIL [Concomitant]
     Active Substance: IBUPROFEN
     Indication: Product used for unknown indication
  12. VITAMIN B2 [Concomitant]
     Active Substance: RIBOFLAVIN
     Indication: Product used for unknown indication
  13. IBUPROFEN [Concomitant]
     Active Substance: IBUPROFEN
     Indication: Product used for unknown indication
  14. QUETIAPINE FUMARATE [Concomitant]
     Active Substance: QUETIAPINE FUMARATE
     Indication: Product used for unknown indication
  15. SINEMET [Concomitant]
     Active Substance: CARBIDOPA\LEVODOPA
     Dosage: 25/100, 1.5 TAB 5 TIMES DAILY, EVERY 3 HRS, STARTING 6:00 A.M, ENDING 6:00 P.M THEN 50/200 BEDTIME
  16. TYLENOL [Concomitant]
     Active Substance: ACETAMINOPHEN
  17. RIBOFLAVIN [Concomitant]
     Active Substance: RIBOFLAVIN
  18. QUETIAPINE [Concomitant]
     Active Substance: QUETIAPINE
     Dosage: 300 MILLIGRAM ER AT BEDTIME
  19. QUETIAPINE [Concomitant]
     Active Substance: QUETIAPINE
     Dosage: AT 5-6 P.M.
  20. DONEPEZIL [Concomitant]
     Active Substance: DONEPEZIL
     Dosage: 5 MILLIGRAM AT BEDTIME
  21. MELATONIN [Concomitant]
     Active Substance: MELATONIN

REACTIONS (16)
  - Urinary tract infection [Unknown]
  - Circulatory collapse [Unknown]
  - Dehydration [Unknown]
  - Ulna fracture [Unknown]
  - Fall [Unknown]
  - Paranoia [Unknown]
  - Anal incontinence [Unknown]
  - Insomnia [Unknown]
  - Product administration error [Unknown]
  - Dementia [Unknown]
  - Urinary incontinence [Unknown]
  - Dysphagia [Recovered/Resolved]
  - Confusional state [Not Recovered/Not Resolved]
  - Hallucination [Unknown]
  - Fall [Unknown]
  - Confusional state [Unknown]

NARRATIVE: CASE EVENT DATE: 20181001
